FAERS Safety Report 20531321 (Version 1)
Quarter: 2022Q1

REPORT INFORMATION
  Report Type: Spontaneous
  Country: IT (occurrence: IT)
  Receive Date: 20220301
  Receipt Date: 20220301
  Transmission Date: 20220423
  Serious: Yes (Hospitalization)
  Sender: FDA-Public Use
  Company Number: IT-009507513-2202ITA006918

PATIENT
  Age: 67 Year
  Sex: Male

DRUGS (1)
  1. MOLNUPIRAVIR [Suspect]
     Active Substance: MOLNUPIRAVIR
     Dosage: 4 CAPSULES, TWICE EVERY 12 HOURS
     Route: 048
     Dates: end: 20220221

REACTIONS (2)
  - Intentional overdose [Unknown]
  - No adverse event [Unknown]

NARRATIVE: CASE EVENT DATE: 20220221
